FAERS Safety Report 17963285 (Version 1)
Quarter: 2020Q2

REPORT INFORMATION
  Report Type: Spontaneous
  Country: US (occurrence: US)
  Receive Date: 20200630
  Receipt Date: 20200630
  Transmission Date: 20200714
  Serious: No
  Sender: FDA-Public Use
  Company Number: None

PATIENT
  Age: 30 Year
  Sex: Female
  Weight: 100.1 kg

DRUGS (1)
  1. INFLIXIMAB [Suspect]
     Active Substance: INFLIXIMAB
     Indication: RHEUMATOID ARTHRITIS
     Dosage: ?          OTHER FREQUENCY:EVERY 8 WEEKS;?
     Route: 042
     Dates: start: 20200629, end: 20200629

REACTIONS (11)
  - Diarrhoea [None]
  - Urticaria [None]
  - Burning sensation [None]
  - Abdominal pain [None]
  - Palmar erythema [None]
  - Lip swelling [None]
  - Swelling face [None]
  - Restlessness [None]
  - Pruritus [None]
  - Ocular hyperaemia [None]
  - Infusion related reaction [None]

NARRATIVE: CASE EVENT DATE: 20200629
